FAERS Safety Report 13131894 (Version 2)
Quarter: 2017Q1

REPORT INFORMATION
  Report Type: Report from Study
  Country: US (occurrence: US)
  Receive Date: 20170119
  Receipt Date: 20170216
  Transmission Date: 20170428
  Serious: Yes (Other)
  Sender: FDA-Public Use
  Company Number: US-SAOL THERAPEUTICS-2017SAO00098

PATIENT
  Age: 45 Year
  Sex: Female

DRUGS (32)
  1. COMPOUNDED BACLOFEN [Suspect]
     Active Substance: BACLOFEN
     Dosage: 791.3 ?G, \DAY
     Dates: start: 20161013
  2. CLONIDINE. [Suspect]
     Active Substance: CLONIDINE
     Dosage: 56.80 ?G, \DAY
     Dates: start: 20160908, end: 20161013
  3. BUPIVACAINE. [Suspect]
     Active Substance: BUPIVACAINE
     Dosage: 7.995 MG, \DAY
     Dates: start: 20161013
  4. BUPIVACAINE. [Suspect]
     Active Substance: BUPIVACAINE
     Dosage: 8.404 MG, \DAY
     Dates: start: 20161209
  5. COMPOUNDED BACLOFEN [Suspect]
     Active Substance: BACLOFEN
     Dosage: 709.9 ?G, \DAY
     Dates: start: 20160908, end: 20161013
  6. MORPHINE [Suspect]
     Active Substance: MORPHINE
     Dosage: 5.997 MG, \DAY
     Dates: start: 20161013
  7. MORPHINE [Suspect]
     Active Substance: MORPHINE
     Dosage: 9.495 MG, \DAY
     Dates: start: 20161013
  8. MORPHINE [Suspect]
     Active Substance: MORPHINE
     Dosage: 14.345 MG, \DAY
     Dates: start: 20161209
  9. COMPOUNDED BACLOFEN [Suspect]
     Active Substance: BACLOFEN
     Dosage: 1323.4 ?G, \DAY
     Dates: start: 20161116, end: 20161209
  10. COMPOUNDED BACLOFEN [Suspect]
     Active Substance: BACLOFEN
     Dosage: 588.3 ?G, \DAY
     Dates: start: 20161209
  11. COMPOUNDED BACLOFEN [Suspect]
     Active Substance: BACLOFEN
     Dosage: 417.0 UNK, \DAY
     Dates: start: 20160908, end: 20161013
  12. BUPIVACAINE. [Suspect]
     Active Substance: BUPIVACAINE
     Dosage: 6.672 MG, \DAY
     Dates: start: 20160908, end: 20161013
  13. COMPOUNDED BACLOFEN [Suspect]
     Active Substance: BACLOFEN
     Dosage: 625.5 ?G, \DAY
     Dates: start: 20161116, end: 20161209
  14. CLONIDINE. [Suspect]
     Active Substance: CLONIDINE
     Dosage: 63.60 ?G, \DAY
     Dates: start: 20161013
  15. MORPHINE [Suspect]
     Active Substance: MORPHINE
     Dosage: 5.004 MG, \DAY
     Dates: start: 20160908, end: 20161013
  16. MORPHINE [Suspect]
     Active Substance: MORPHINE
     Dosage: 6.702 MG, \DAY
     Dates: start: 20161013, end: 20161209
  17. MORPHINE [Suspect]
     Active Substance: MORPHINE
     Dosage: 6.303 MG, \DAY
     Dates: start: 20161209
  18. BUPIVACAINE. [Suspect]
     Active Substance: BUPIVACAINE
     Dosage: 8.936 MG, \DAY
     Dates: start: 20161013, end: 20161209
  19. MORPHINE [Suspect]
     Active Substance: MORPHINE
     Dosage: 8.519 MG, \DAY
     Dates: start: 20160908, end: 20161013
  20. MORPHINE [Suspect]
     Active Substance: MORPHINE
     Dosage: 14.179 MG, \DAY
     Dates: start: 20161116, end: 20161209
  21. COMPOUNDED BACLOFEN [Suspect]
     Active Substance: BACLOFEN
     Dosage: 499.7 ?G, \DAY
     Dates: start: 20161013
  22. CLONIDINE. [Suspect]
     Active Substance: CLONIDINE
     Dosage: 33.36 ?G, \DAY
     Dates: start: 20160908, end: 20161013
  23. CLONIDINE. [Suspect]
     Active Substance: CLONIDINE
     Dosage: 39.98 ?G, \DAY
     Dates: start: 20161013
  24. BUPIVACAINE. [Suspect]
     Active Substance: BUPIVACAINE
     Dosage: 12.661 MG, \DAY
     Dates: start: 20161013, end: 20161209
  25. BUPIVACAINE. [Suspect]
     Active Substance: BUPIVACAINE
     Dosage: 18.905 MG, \DAY
     Dates: start: 20161116, end: 20161209
  26. CLONIDINE. [Suspect]
     Active Substance: CLONIDINE
     Dosage: 89.36 ?G, \DAY
     Dates: start: 20161116, end: 20161209
  27. CLONIDINE. [Suspect]
     Active Substance: CLONIDINE
     Dosage: 189.05 ?G, \DAY
     Dates: start: 20161116, end: 20161209
  28. CLONIDINE. [Suspect]
     Active Substance: CLONIDINE
     Dosage: 191.27 ?G, \DAY
     Dates: start: 20161209
  29. BUPIVACAINE. [Suspect]
     Active Substance: BUPIVACAINE
     Dosage: 11.359 MG, \DAY
     Dates: start: 20160908, end: 20161013
  30. BUPIVACAINE. [Suspect]
     Active Substance: BUPIVACAINE
     Dosage: 19.127 MG, \DAY
     Dates: start: 20161209
  31. COMPOUNDED BACLOFEN [Suspect]
     Active Substance: BACLOFEN
     Dosage: 1338.9 ?G, \DAY
     Dates: start: 20161209
  32. CLONIDINE. [Suspect]
     Active Substance: CLONIDINE
     Dosage: 84.04 ?G, \DAY
     Dates: start: 20161209

REACTIONS (8)
  - Device kink [Unknown]
  - Muscular weakness [Recovered/Resolved]
  - Pain [Recovered/Resolved]
  - Therapeutic product ineffective for unapproved indication [Unknown]
  - Hypoaesthesia [Recovered/Resolved]
  - Hypotension [Recovered/Resolved]
  - Nausea [Recovered/Resolved]
  - Muscle spasms [Recovered/Resolved]

NARRATIVE: CASE EVENT DATE: 20161111
